FAERS Safety Report 6850827-1 (Version None)
Quarter: 2010Q3

REPORT INFORMATION
  Report Type: 
  Country: None (occurrence: None)
  Receive Date: 20100716
  Receipt Date: 20100713
  Transmission Date: 20110219
  Serious: Yes (Hospitalization)
  Sender: FDA-Public Use
  Company Number: AU-AMGEN-QUU423892

PATIENT

DRUGS (1)
  1. NPLATE [Suspect]
     Indication: IDIOPATHIC THROMBOCYTOPENIC PURPURA
     Dates: start: 20100101, end: 20100701

REACTIONS (4)
  - CYTOGENETIC ABNORMALITY [None]
  - LEUKOPENIA [None]
  - MYELODYSPLASTIC SYNDROME [None]
  - PANCYTOPENIA [None]
